FAERS Safety Report 10094507 (Version 1)
Quarter: 2014Q2

REPORT INFORMATION
  Report Type: Spontaneous
  Country: CA (occurrence: None)
  Receive Date: 20140418
  Receipt Date: 20140418
  Transmission Date: 20141212
  Serious: Yes (Hospitalization)
  Sender: FDA-Public Use
  Company Number: CA-013563

PATIENT
  Age: 69 Year
  Sex: Male

DRUGS (8)
  1. FIRMAGON /01764801/ (FIRMAGON) (240 MG, 80 MG) (NOT SPECIFIED) [Suspect]
     Indication: PRODUCT USED FOR UNKNOWN INDICATION
     Route: 058
     Dates: start: 20130301, end: 20130301
  2. DETROL [Concomitant]
  3. GABAPENTIN [Concomitant]
  4. CALCIUM VIT D [Concomitant]
  5. ADDITIVA VITAMIN C [Concomitant]
  6. COMBINATIONS OF ANTIHYPERTENSIVES IN ATC-GR [Concomitant]
  7. ANTACID /01054901/ [Concomitant]
  8. SERUM LIPID REDUCING AGENTS [Concomitant]

REACTIONS (7)
  - Urinary incontinence [None]
  - Weight increased [None]
  - Injection site reaction [None]
  - Intestinal perforation [None]
  - Bladder cancer [None]
  - No therapeutic response [None]
  - Product quality issue [None]
